FAERS Safety Report 25730625 (Version 1)
Quarter: 2025Q3

REPORT INFORMATION
  Report Type: Spontaneous
  Country: US (occurrence: US)
  Receive Date: 20250827
  Receipt Date: 20250827
  Transmission Date: 20251020
  Serious: Yes (Other)
  Sender: NOVARTIS
  Company Number: US-002147023-NVSC2025US131881

PATIENT
  Sex: Male

DRUGS (1)
  1. INCLISIRAN [Suspect]
     Active Substance: INCLISIRAN
     Indication: Product used for unknown indication
     Route: 065

REACTIONS (7)
  - Poisoning [Unknown]
  - Pain [Unknown]
  - Fear of injection [Unknown]
  - Amnesia [Unknown]
  - Eating disorder [Unknown]
  - Insomnia [Unknown]
  - Illness [Unknown]
